FAERS Safety Report 12835690 (Version 6)
Quarter: 2017Q2

REPORT INFORMATION
  Report Type: Report from Study
  Country: FR (occurrence: FR)
  Receive Date: 20161011
  Receipt Date: 20170403
  Transmission Date: 20170830
  Serious: Yes (Death, Life-Threatening, Hospitalization, Other)
  Sender: FDA-Public Use
  Company Number: PHHY2016FR137893

PATIENT
  Age: 67 Year
  Sex: Female

DRUGS (3)
  1. AROMASINE [Suspect]
     Active Substance: EXEMESTANE
     Indication: PRODUCT USED FOR UNKNOWN INDICATION
     Dosage: 25 MG, QD
     Route: 065
     Dates: start: 20151114, end: 20160722
  2. MORPHINE [Suspect]
     Active Substance: MORPHINE
     Indication: PRODUCT USED FOR UNKNOWN INDICATION
     Route: 065
  3. AFINITOR [Suspect]
     Active Substance: EVEROLIMUS
     Indication: BREAST CANCER METASTATIC
     Dosage: 10 MG, QD
     Route: 048
     Dates: start: 20151114, end: 20160722

REACTIONS (20)
  - Vomiting [Unknown]
  - Inflammation [Unknown]
  - Hypercalcaemia [Unknown]
  - Headache [Recovering/Resolving]
  - Asthenia [Unknown]
  - Stomatitis [Recovering/Resolving]
  - Hypotonia [Unknown]
  - Metastases to liver [Not Recovered/Not Resolved]
  - Metastases to bone marrow [Unknown]
  - Hepatic encephalopathy [Fatal]
  - Thrombocytopenia [Unknown]
  - Chest pain [Recovered/Resolved]
  - Blood triglycerides increased [Unknown]
  - Drug intolerance [Unknown]
  - General physical health deterioration [Fatal]
  - Anaemia [Recovering/Resolving]
  - Dyspnoea [Recovered/Resolved]
  - Malignant neoplasm progression [Unknown]
  - Circadian rhythm sleep disorder [Fatal]
  - Jaundice [Unknown]

NARRATIVE: CASE EVENT DATE: 20151119
